FAERS Safety Report 5071789-6 (Version None)
Quarter: 2006Q3

REPORT INFORMATION
  Report Type: 
  Country: None (occurrence: None)
  Receive Date: 20060801
  Receipt Date: 20060726
  Transmission Date: 20061208
  Serious: Yes (Life-Threatening, Hospitalization, Disabling, Other)
  Sender: FDA-Public Use
  Company Number: 2006RR-03071

PATIENT
  Age: 35 Year
  Sex: Male

DRUGS (1)
  1. LORATADINE [Suspect]
     Dosage: 10 MG, QID
     Dates: start: 20030501, end: 20030701

REACTIONS (8)
  - AUTOIMMUNE HEPATITIS [None]
  - CHOLESTASIS [None]
  - FLUID RETENTION [None]
  - LEUKOPENIA [None]
  - MALAISE [None]
  - NEUTROPENIA [None]
  - PAIN [None]
  - THIRST [None]
